FAERS Safety Report 8168623-4 (Version None)
Quarter: 2012Q1

REPORT INFORMATION
  Report Type: 
  Country: None (occurrence: None)
  Receive Date: 20120222
  Receipt Date: 20120208
  Transmission Date: 20120608
  Serious: Yes (Hospitalization, Other)
  Sender: FDA-Public Use
  Company Number: AUR-APL-2012-00920

PATIENT
  Age: 81 Year
  Sex: Male

DRUGS (9)
  1. ACETYLSALICYLIC ACID SRT [Concomitant]
  2. AMLODIPINE [Concomitant]
     Indication: ESSENTIAL HYPERTENSION
  3. ENALAPRIL MALEATE [Concomitant]
  4. METFORMIN HCL [Suspect]
     Indication: DIABETES MELLITUS
  5. LIPITOR [Suspect]
     Indication: HYPERLIPIDAEMIA
  6. PRIMPERAN TAB [Concomitant]
  7. LACTULOSE [Concomitant]
  8. NOVOMIX (INSULIN ASPART) [Concomitant]
  9. TOLTERODINE TARTRATE [Concomitant]

REACTIONS (4)
  - NAUSEA [None]
  - DIZZINESS [None]
  - VOMITING [None]
  - DYSSTASIA [None]
